FAERS Safety Report 4909364-3 (Version None)
Quarter: 2006Q1

REPORT INFORMATION
  Report Type: 
  Country: None (occurrence: None)
  Receive Date: 20060213
  Receipt Date: 20060203
  Transmission Date: 20060701
  Serious: Yes (Hospitalization)
  Sender: FDA-Public Use
  Company Number: 433241

PATIENT
  Age: 60 Year

DRUGS (9)
  1. CARVEDILOL [Suspect]
     Indication: DRUG USE FOR UNKNOWN INDICATION
     Dosage: 12MG PER DAY
     Route: 048
     Dates: end: 20040409
  2. DIGOXIN [Suspect]
     Dosage: 250MG PER DAY
  3. WARFARIN [Concomitant]
  4. INTAL FORTE [Concomitant]
     Dates: end: 20040409
  5. ATACAND [Concomitant]
     Dates: end: 20040409
  6. SIMVASTATIN [Concomitant]
  7. FRUSEMIDE [Concomitant]
  8. QUININE [Concomitant]
  9. GLIMEPIRIDE [Concomitant]

REACTIONS (7)
  - BRADYCARDIA [None]
  - DIARRHOEA [None]
  - DRUG LEVEL INCREASED [None]
  - DYSPNOEA [None]
  - INTERNATIONAL NORMALISED RATIO INCREASED [None]
  - PULMONARY OEDEMA [None]
  - THERAPEUTIC AGENT TOXICITY [None]
